FAERS Safety Report 9095234 (Version 1)
Quarter: 2013Q1

REPORT INFORMATION
  Report Type: Spontaneous
  Country: US (occurrence: US)
  Receive Date: 20130201
  Receipt Date: 20130201
  Transmission Date: 20140127
  Serious: No
  Sender: FDA-Public Use
  Company Number: US-PFIZER INC-2013041314

PATIENT
  Age: 45 Year
  Sex: Female
  Weight: 63.49 kg

DRUGS (1)
  1. ADVIL COLD AND SINUS [Suspect]
     Indication: SINUS HEADACHE
     Dosage: UNK, DAILY
     Route: 048
     Dates: start: 20130127, end: 20130129

REACTIONS (1)
  - Amphetamines positive [Unknown]
